FAERS Safety Report 13095943 (Version 8)
Quarter: 2018Q1

REPORT INFORMATION
  Report Type: Report from Study
  Country: US (occurrence: US)
  Receive Date: 20170109
  Receipt Date: 20180320
  Transmission Date: 20180508
  Serious: No
  Sender: FDA-Public Use
  Company Number: PHEH2017US000739

PATIENT
  Sex: Female

DRUGS (1)
  1. GLEEVEC [Suspect]
     Active Substance: IMATINIB MESYLATE
     Indication: PRODUCT USED FOR UNKNOWN INDICATION
     Dosage: 400 MG/KG, QD
     Route: 048

REACTIONS (10)
  - Epistaxis [Unknown]
  - Vomiting [Unknown]
  - Depression [Unknown]
  - Regurgitation [Unknown]
  - Nausea [Unknown]
  - Malaise [Unknown]
  - Dysphonia [Unknown]
  - Nasopharyngitis [Unknown]
  - Headache [Unknown]
  - Influenza [Unknown]
